FAERS Safety Report 4993626-8 (Version None)
Quarter: 2006Q2

REPORT INFORMATION
  Report Type: 
  Country: None (occurrence: None)
  Receive Date: 20060505
  Receipt Date: 20051227
  Transmission Date: 20061013
  Serious: Yes (Hospitalization)
  Sender: FDA-Public Use
  Company Number: 2005AP06622

PATIENT
  Age: 689 Month
  Sex: Male
  Weight: 67 kg

DRUGS (47)
  1. DIPRIVAN [Suspect]
     Indication: ANAESTHESIA
     Dosage: 120 MG INDUCTION; 200 MG/HR MAINTENANCE
     Route: 042
     Dates: start: 20051120, end: 20051120
  2. DIPRIVAN [Suspect]
     Indication: SEDATION
     Dosage: 120 MG INDUCTION; 200 MG/HR MAINTENANCE
     Route: 042
     Dates: start: 20051120, end: 20051120
  3. DIPRIVAN [Suspect]
     Route: 042
     Dates: start: 20051120, end: 20051121
  4. DIPRIVAN [Suspect]
     Route: 042
     Dates: start: 20051120, end: 20051121
  5. DIPRIVAN [Suspect]
     Route: 042
     Dates: start: 20051121, end: 20051121
  6. DIPRIVAN [Suspect]
     Route: 042
     Dates: start: 20051121, end: 20051121
  7. DIPRIVAN [Suspect]
     Route: 042
     Dates: start: 20051121, end: 20051127
  8. DIPRIVAN [Suspect]
     Route: 042
     Dates: start: 20051121, end: 20051127
  9. DIPRIVAN [Suspect]
     Route: 042
     Dates: start: 20051127, end: 20051128
  10. DIPRIVAN [Suspect]
     Route: 042
     Dates: start: 20051127, end: 20051128
  11. DIPRIVAN [Suspect]
     Route: 042
     Dates: start: 20051128, end: 20051129
  12. DIPRIVAN [Suspect]
     Route: 042
     Dates: start: 20051128, end: 20051129
  13. DIPRIVAN [Suspect]
     Route: 042
     Dates: start: 20051129, end: 20051130
  14. DIPRIVAN [Suspect]
     Route: 042
     Dates: start: 20051129, end: 20051130
  15. DIPRIVAN [Suspect]
     Route: 042
     Dates: start: 20051130, end: 20051206
  16. DIPRIVAN [Suspect]
     Route: 042
     Dates: start: 20051130, end: 20051206
  17. KAKODIN [Concomitant]
     Indication: BLOOD PRESSURE MANAGEMENT
     Route: 041
     Dates: start: 20051119, end: 20051208
  18. KAKODIN [Concomitant]
     Indication: SHOCK
     Route: 041
     Dates: start: 20051119, end: 20051208
  19. KAKODIN [Concomitant]
     Route: 041
     Dates: start: 20051120, end: 20051120
  20. KAKODIN [Concomitant]
     Route: 041
     Dates: start: 20051120, end: 20051120
  21. AMIKACIN SULFATE [Concomitant]
     Route: 041
     Dates: start: 20051120, end: 20051211
  22. VANCOMYCIN [Concomitant]
     Route: 041
     Dates: start: 20051120
  23. HUMULIN 70/30 [Concomitant]
     Indication: PROPHYLAXIS
     Route: 041
     Dates: start: 20051120, end: 20051120
  24. HUMULIN 70/30 [Concomitant]
     Indication: GLUCOSE TOLERANCE IMPAIRED
     Route: 041
     Dates: start: 20051120, end: 20051120
  25. HUMULIN 70/30 [Concomitant]
     Route: 041
     Dates: start: 20051120, end: 20051208
  26. HUMULIN 70/30 [Concomitant]
     Route: 041
     Dates: start: 20051120, end: 20051208
  27. HEPARIN [Concomitant]
     Indication: THROMBOSIS IN DEVICE
     Route: 041
     Dates: start: 20051120, end: 20051120
  28. HEPARIN [Concomitant]
     Indication: ANTICOAGULANT THERAPY
     Route: 041
     Dates: start: 20051120, end: 20051120
  29. HEPARIN [Concomitant]
     Route: 041
     Dates: start: 20051122, end: 20051207
  30. HEPARIN [Concomitant]
     Route: 041
     Dates: start: 20051122, end: 20051207
  31. VASOLAN [Concomitant]
     Indication: PROPHYLAXIS
     Route: 041
     Dates: start: 20051123, end: 20051211
  32. FENTANEST [Concomitant]
     Indication: ANAESTHESIA
     Route: 042
     Dates: start: 20051120, end: 20051120
  33. FENTANEST [Concomitant]
     Indication: SEDATION
     Route: 042
     Dates: start: 20051120, end: 20051120
  34. MUSCULAX [Concomitant]
     Indication: MUSCLE RELAXANT THERAPY
     Route: 042
     Dates: start: 20051120, end: 20051120
  35. SEFAMEZIN ALPHA [Concomitant]
     Indication: INFECTION PROPHYLAXIS
     Dates: start: 20051120, end: 20051120
  36. INDERAL [Concomitant]
     Indication: PROPHYLAXIS
     Dates: start: 20051120, end: 20051120
  37. NORADRENALINE [Concomitant]
     Indication: BLOOD PRESSURE MANAGEMENT
     Route: 042
     Dates: start: 20051120, end: 20051120
  38. NORADRENALINE [Concomitant]
     Indication: SHOCK
     Route: 042
     Dates: start: 20051120, end: 20051120
  39. NORADRENALINE [Concomitant]
     Route: 041
     Dates: start: 20051120, end: 20051208
  40. NORADRENALINE [Concomitant]
     Route: 041
     Dates: start: 20051120, end: 20051208
  41. PITRESSIN [Concomitant]
     Indication: BLOOD PRESSURE MANAGEMENT
     Route: 042
     Dates: start: 20051120, end: 20051120
  42. LASIX [Concomitant]
     Indication: POLYURIA
     Route: 042
     Dates: start: 20051120, end: 20051120
  43. DOBUTREX [Concomitant]
     Indication: POSITIVE CARDIAC INOTROPIC EFFECT
     Route: 042
     Dates: start: 20051120, end: 20051120
  44. DOBUTREX [Concomitant]
     Route: 041
     Dates: start: 20051120, end: 20051121
  45. CARCICOL [Concomitant]
     Indication: HYPOCALCAEMIA
     Route: 042
     Dates: start: 20051120, end: 20051120
  46. PROTAMINE SULFATE [Concomitant]
     Indication: HEPARIN NEUTRALISATION THERAPY
     Route: 042
     Dates: start: 20051120, end: 20051120
  47. HANP [Concomitant]

REACTIONS (1)
  - DELAYED RECOVERY FROM ANAESTHESIA [None]
